FAERS Safety Report 8298841-6 (Version None)
Quarter: 2012Q2

REPORT INFORMATION
  Report Type: 
  Country: None (occurrence: None)
  Receive Date: 20120419
  Receipt Date: 20120412
  Transmission Date: 20120825
  Serious: Yes (Life-Threatening, Hospitalization, Other)
  Sender: FDA-Public Use
  Company Number: CA-ROXANE LABORATORIES, INC.-2012-RO-01057RO

PATIENT
  Age: 3 Year
  Sex: Female
  Weight: 14 kg

DRUGS (2)
  1. CODEINE SUL TAB [Suspect]
     Indication: PROCEDURAL PAIN
     Dosage: 30 MG
  2. CODEINE PHOSPHATE AND ACETAMINOPHEN [Suspect]
     Indication: PROCEDURAL PAIN

REACTIONS (4)
  - TOXICITY TO VARIOUS AGENTS [None]
  - UNRESPONSIVE TO STIMULI [None]
  - PYREXIA [None]
  - HAEMATEMESIS [None]
